FAERS Safety Report 14181870 (Version 1)
Quarter: 2017Q4

REPORT INFORMATION
  Report Type: Spontaneous
  Country: CH (occurrence: CH)
  Receive Date: 20171113
  Receipt Date: 20171113
  Transmission Date: 20180321
  Serious: Yes (Other)
  Sender: FDA-Public Use
  Company Number: CH-ROCHE-2020986

PATIENT
  Age: 21 Year
  Sex: Female

DRUGS (27)
  1. SALBUTAMOL [Concomitant]
     Active Substance: ALBUTEROL
  2. ACTEMRA [Suspect]
     Active Substance: TOCILIZUMAB
     Route: 041
     Dates: start: 20160503, end: 20160503
  3. NOREPINEPHRINE. [Concomitant]
     Active Substance: NOREPINEPHRINE
     Indication: CYTOKINE RELEASE SYNDROME
  4. HYDRALAZINE [Concomitant]
     Active Substance: HYDRALAZINE HYDROCHLORIDE
     Route: 065
     Dates: start: 20160501
  5. MEROPENEM. [Concomitant]
     Active Substance: MEROPENEM
  6. PHYTOMENADIONE [Concomitant]
     Active Substance: PHYTONADIONE
  7. TISAGENLECLEUCEL. [Suspect]
     Active Substance: TISAGENLECLEUCEL
     Indication: B-CELL TYPE ACUTE LEUKAEMIA
     Dosage: DOSAGE IS UNCERTAIN.
     Route: 041
  8. FLUDARABINE [Concomitant]
     Active Substance: FLUDARABINE PHOSPHATE
     Route: 065
     Dates: start: 20160413, end: 20160416
  9. MICAFUNGIN SODIUM [Concomitant]
     Active Substance: MICAFUNGIN SODIUM
  10. HEPARIN [Concomitant]
     Active Substance: HEPARIN SODIUM
  11. PSEUDOEPHEDRINE HYDROCHLORIDE. [Concomitant]
     Active Substance: PSEUDOEPHEDRINE HYDROCHLORIDE
     Indication: ACUTE SINUSITIS
  12. ONDANSETRON [Concomitant]
     Active Substance: ONDANSETRON
     Indication: CYTOKINE RELEASE SYNDROME
  13. FENTANYL CITRATE. [Concomitant]
     Active Substance: FENTANYL CITRATE
     Indication: CYTOKINE RELEASE SYNDROME
  14. FUROSEMIDE. [Concomitant]
     Active Substance: FUROSEMIDE
  15. CAPTOPRIL. [Concomitant]
     Active Substance: CAPTOPRIL
  16. OXYMETAZOLINE [Concomitant]
     Active Substance: OXYMETAZOLINE
     Indication: ACUTE SINUSITIS
  17. CYCLOPHOSPHAMIDE. [Concomitant]
     Active Substance: CYCLOPHOSPHAMIDE
     Route: 065
     Dates: start: 20160413, end: 20160414
  18. FLUTICASONE. [Concomitant]
     Active Substance: FLUTICASONE
     Indication: ACUTE SINUSITIS
  19. AZITHROMYCIN ANHYDROUS. [Concomitant]
     Active Substance: AZITHROMYCIN ANHYDROUS
     Indication: ACUTE SINUSITIS
  20. ACTEMRA [Suspect]
     Active Substance: TOCILIZUMAB
     Indication: CYTOKINE RELEASE SYNDROME
     Route: 041
     Dates: start: 20160424, end: 20160424
  21. METHYLPREDNISOLONE. [Concomitant]
     Active Substance: METHYLPREDNISOLONE
     Indication: CYTOKINE RELEASE SYNDROME
  22. VANCOMYCIN [Concomitant]
     Active Substance: VANCOMYCIN
  23. AMLODIPINE [Concomitant]
     Active Substance: AMLODIPINE BESYLATE
  24. CHLOROTHIAZIDE. [Concomitant]
     Active Substance: CHLOROTHIAZIDE
  25. AMOXICILLIN/CLAVULANIC ACID [Concomitant]
     Active Substance: AMOXICILLIN\CLAVULANIC ACID
     Indication: ACUTE SINUSITIS
  26. PARACETAMOL [Concomitant]
     Active Substance: ACETAMINOPHEN
     Indication: CYTOKINE RELEASE SYNDROME
  27. HYDROCORTISONE SODIUM SUCCINATE [Concomitant]
     Active Substance: HYDROCORTISONE SODIUM SUCCINATE

REACTIONS (8)
  - Alanine aminotransferase increased [Unknown]
  - Cardiac failure [Recovered/Resolved]
  - Clostridium difficile infection [Recovered/Resolved]
  - White blood cell count decreased [Unknown]
  - Aspartate aminotransferase increased [Unknown]
  - Acute kidney injury [Recovered/Resolved]
  - Delirium [Recovered/Resolved]
  - Respiratory failure [Recovered/Resolved]

NARRATIVE: CASE EVENT DATE: 20160424
